FAERS Safety Report 15918410 (Version 7)
Quarter: 2019Q4

REPORT INFORMATION
  Report Type: Spontaneous
  Country: US (occurrence: US)
  Receive Date: 20190205
  Receipt Date: 20191223
  Transmission Date: 20200122
  Serious: Yes (Hospitalization, Disabling, Other)
  Sender: FDA-Public Use
  Company Number: US-SA-2019SA028050

PATIENT
  Age: 51 Year
  Sex: Female
  Weight: 48.98 kg

DRUGS (16)
  1. AUBAGIO [Suspect]
     Active Substance: TERIFLUNOMIDE
     Dosage: 14 MG QD
     Route: 048
     Dates: start: 201912
  2. MORPHINE SULFATE. [Concomitant]
     Active Substance: MORPHINE SULFATE
     Indication: PAIN
  3. BOTOX [Concomitant]
     Active Substance: ONABOTULINUMTOXINA
     Indication: HEADACHE
  4. COPAXONE [Concomitant]
     Active Substance: GLATIRAMER ACETATE
     Dosage: 1 ML THREE TIMES PER WEEK W/48 HRS BETWEEN DOSES
  5. AUBAGIO [Suspect]
     Active Substance: TERIFLUNOMIDE
     Dosage: 14 MG, QD
     Route: 048
  6. AUBAGIO [Suspect]
     Active Substance: TERIFLUNOMIDE
     Dosage: 1 DF, QD
     Route: 048
     Dates: start: 2018
  7. ABILIFY [Concomitant]
     Active Substance: ARIPIPRAZOLE
  8. NORCO [Concomitant]
     Active Substance: ACETAMINOPHEN\HYDROCODONE BITARTRATE
     Indication: PAIN
     Dosage: UNK
  9. ROBAXIN [Concomitant]
     Active Substance: METHOCARBAMOL
  10. NORCO [Concomitant]
     Active Substance: ACETAMINOPHEN\HYDROCODONE BITARTRATE
     Indication: PAIN MANAGEMENT
     Dosage: UNK
  11. ROBAXIN [Concomitant]
     Active Substance: METHOCARBAMOL
     Dosage: UNK
  12. ASPIRINE 325 MG [Concomitant]
     Dosage: UNK UNK, PRN
  13. CYMBALTA [Concomitant]
     Active Substance: DULOXETINE HYDROCHLORIDE
  14. PROMETHAZINE [Concomitant]
     Active Substance: PROMETHAZINE HYDROCHLORIDE
  15. LYRICA [Concomitant]
     Active Substance: PREGABALIN
     Indication: PAIN
  16. ALEVE [Concomitant]
     Active Substance: NAPROXEN SODIUM
     Dosage: UNK UNK, PRN

REACTIONS (22)
  - Arthralgia [Unknown]
  - Back pain [Unknown]
  - Protein total increased [Unknown]
  - Decreased appetite [Recovering/Resolving]
  - Meningitis [Unknown]
  - Neck pain [Unknown]
  - Walking aid user [Not Recovered/Not Resolved]
  - Hypoaesthesia [Not Recovered/Not Resolved]
  - Neuropathy peripheral [Not Recovered/Not Resolved]
  - Urinary incontinence [Not Recovered/Not Resolved]
  - Staphylococcal bacteraemia [Recovering/Resolving]
  - White blood cell count increased [Unknown]
  - Weight decreased [Unknown]
  - Depression [Unknown]
  - Product dose omission [Unknown]
  - Osteoarthritis [Unknown]
  - Eye pain [Not Recovered/Not Resolved]
  - Nasopharyngitis [Recovered/Resolved]
  - Asthenia [Recovering/Resolving]
  - Blood glucose decreased [Unknown]
  - Vision blurred [Not Recovered/Not Resolved]
  - Balance disorder [Not Recovered/Not Resolved]
